FAERS Safety Report 23399083 (Version 2)
Quarter: 2024Q1

REPORT INFORMATION
  Report Type: Report from Study
  Country: US (occurrence: US)
  Receive Date: 20240113
  Receipt Date: 20240216
  Transmission Date: 20240410
  Serious: Yes (Other)
  Sender: FDA-Public Use
  Company Number: US-ABBVIE-5582400

PATIENT
  Age: 62 Year
  Sex: Male

DRUGS (1)
  1. RINVOQ [Suspect]
     Active Substance: UPADACITINIB
     Indication: Colitis ulcerative
     Route: 048
     Dates: start: 20221001

REACTIONS (4)
  - Spinal operation [Not Recovered/Not Resolved]
  - Shoulder operation [Recovering/Resolving]
  - Pain in extremity [Not Recovered/Not Resolved]
  - Spinal fusion surgery [Recovering/Resolving]

NARRATIVE: CASE EVENT DATE: 20230109
